FAERS Safety Report 5472139-3 (Version None)
Quarter: 2007Q3

REPORT INFORMATION
  Report Type: 
  Country: None (occurrence: None)
  Receive Date: 20070925
  Receipt Date: 20070914
  Transmission Date: 20080115
  Serious: Yes (Death)
  Sender: FDA-Public Use
  Company Number: US021257

PATIENT
  Age: 20 Year
  Sex: Female
  Weight: 54.4316 kg

DRUGS (2)
  1. PROVIGIL [Suspect]
     Dosage: 8000 MG NA ORAL
     Route: 048
  2. METHADONE HCL [Suspect]
     Dates: start: 20070831, end: 20070831

REACTIONS (3)
  - DRUG ABUSER [None]
  - DRUG TOXICITY [None]
  - OVERDOSE [None]
